FAERS Safety Report 7338461-0 (Version None)
Quarter: 2011Q1

REPORT INFORMATION
  Report Type: 
  Country: None (occurrence: None)
  Receive Date: 20110308
  Receipt Date: 20110303
  Transmission Date: 20110831
  Serious: Yes (Life-Threatening, Other)
  Sender: FDA-Public Use
  Company Number: PK-ELI_LILLY_AND_COMPANY-PK201103001538

PATIENT
  Age: 68 Year
  Sex: Female
  Weight: 50 kg

DRUGS (2)
  1. HUMALOG MIX 50/50 [Suspect]
     Dosage: 10 U, EACH EVENING
     Dates: start: 20110227, end: 20110228
  2. HUMALOG MIX 50/50 [Suspect]
     Indication: DIABETES MELLITUS
     Dosage: 18 U, EACH MORNING
     Dates: start: 20110227, end: 20110228

REACTIONS (2)
  - VOMITING [None]
  - MYOCARDIAL INFARCTION [None]
